FAERS Safety Report 13537051 (Version 2)
Quarter: 2019Q3

REPORT INFORMATION
  Report Type: Report from Study
  Country: DE (occurrence: DE)
  Receive Date: 20170511
  Receipt Date: 20190822
  Transmission Date: 20191004
  Serious: Yes (Hospitalization)
  Sender: FDA-Public Use
  Company Number: DE-TEVA-766649GER

PATIENT
  Sex: Male
  Weight: 3.37 kg

DRUGS (1)
  1. SERTRALINE [Suspect]
     Active Substance: SERTRALINE HYDROCHLORIDE
     Dosage: 50 MILLIGRAM DAILY;
     Route: 064

REACTIONS (2)
  - Apgar score low [Unknown]
  - Foetal exposure during pregnancy [Unknown]
